FAERS Safety Report 9335956 (Version 1)
Quarter: 2013Q2

REPORT INFORMATION
  Report Type: Spontaneous
  Country: ES (occurrence: ES)
  Receive Date: 20130606
  Receipt Date: 20130606
  Transmission Date: 20140414
  Serious: Yes (Other)
  Sender: FDA-Public Use
  Company Number: PHHY2013ES055043

PATIENT
  Age: 22 Year
  Sex: Male

DRUGS (1)
  1. METFORMIN [Suspect]

REACTIONS (4)
  - Suicide attempt [Unknown]
  - Coma [Unknown]
  - Lactic acidosis [Unknown]
  - Drug level decreased [Unknown]
